FAERS Safety Report 25908824 (Version 1)
Quarter: 2025Q4

REPORT INFORMATION
  Report Type: Report from Study
  Country: JP (occurrence: JP)
  Receive Date: 20251011
  Receipt Date: 20251011
  Transmission Date: 20260117
  Serious: Yes (Hospitalization)
  Sender: ABBVIE
  Company Number: JP-ABBVIE-5845549

PATIENT
  Age: 66 Year
  Sex: Female

DRUGS (1)
  1. VYALEV [Suspect]
     Active Substance: FOSCARBIDOPA\FOSLEVODOPA
     Indication: Parkinson^s disease
     Route: 058
     Dates: start: 20240621, end: 202509

REACTIONS (11)
  - Foot fracture [Unknown]
  - Therapeutic product effect incomplete [Unknown]
  - Infusion site reaction [Unknown]
  - Infusion site reaction [Unknown]
  - Infusion site induration [Unknown]
  - Infusion site reaction [Unknown]
  - Infusion site reaction [Unknown]
  - Infusion site discolouration [Unknown]
  - Middle insomnia [Unknown]
  - Infusion site reaction [Unknown]
  - Fall [Unknown]

NARRATIVE: CASE EVENT DATE: 20240725
